FAERS Safety Report 17816976 (Version 1)
Quarter: 2020Q2

REPORT INFORMATION
  Report Type: Spontaneous
  Country: CN (occurrence: CN)
  Receive Date: 20200522
  Receipt Date: 20200522
  Transmission Date: 20200714
  Serious: Yes (Other)
  Sender: FDA-Public Use
  Company Number: CN-ROCHE-2605387

PATIENT
  Age: 45 Year
  Sex: Female

DRUGS (26)
  1. XELODA [Suspect]
     Active Substance: CAPECITABINE
     Indication: BREAST CANCER METASTATIC
     Route: 048
     Dates: start: 201409, end: 201709
  2. XELODA [Suspect]
     Active Substance: CAPECITABINE
     Indication: BREAST CANCER
  3. ANASTROZOLE. [Concomitant]
     Active Substance: ANASTROZOLE
     Indication: BREAST CANCER METASTATIC
     Route: 065
     Dates: start: 201302
  4. GOSERELIN [Concomitant]
     Active Substance: GOSERELIN
     Indication: BREAST CANCER METASTATIC
     Route: 065
     Dates: start: 201302
  5. GOSERELIN [Concomitant]
     Active Substance: GOSERELIN
     Indication: BREAST CANCER
     Route: 065
     Dates: start: 201405
  6. FULVESTRANT. [Concomitant]
     Active Substance: FULVESTRANT
     Indication: BREAST CANCER METASTATIC
     Route: 065
     Dates: start: 201405
  7. LAPATINIB [Concomitant]
     Active Substance: LAPATINIB
     Indication: BREAST CANCER
  8. PYROTINIB [Concomitant]
     Active Substance: PYROTINIB
     Indication: BREAST CANCER METASTATIC
     Dosage: THERAPY DETAIL WAS NOT REPORTED
     Route: 065
  9. CALCIUM FOLINATE [Concomitant]
     Active Substance: LEUCOVORIN CALCIUM
     Indication: BREAST CANCER METASTATIC
  10. CALCIUM FOLINATE [Concomitant]
     Active Substance: LEUCOVORIN CALCIUM
     Indication: BREAST CANCER
  11. VINORELBINE BITARTRATE [Concomitant]
     Active Substance: VINORELBINE TARTRATE
     Indication: BREAST CANCER METASTATIC
  12. HERCEPTIN [Suspect]
     Active Substance: TRASTUZUMAB
     Indication: BREAST CANCER
  13. VINORELBINE BITARTRATE [Concomitant]
     Active Substance: VINORELBINE TARTRATE
     Indication: BREAST CANCER
  14. PYROTINIB [Concomitant]
     Active Substance: PYROTINIB
     Indication: BREAST CANCER
  15. CARBOPLATIN. [Concomitant]
     Active Substance: CARBOPLATIN
     Indication: BREAST CANCER
  16. FULVESTRANT. [Concomitant]
     Active Substance: FULVESTRANT
     Indication: BREAST CANCER
  17. HERCEPTIN [Suspect]
     Active Substance: TRASTUZUMAB
     Indication: BREAST CANCER METASTATIC
     Dosage: INJECTION
     Route: 041
     Dates: start: 201405, end: 2014
  18. PACLITAXEL. [Concomitant]
     Active Substance: PACLITAXEL
     Indication: BREAST CANCER
  19. CARBOPLATIN. [Concomitant]
     Active Substance: CARBOPLATIN
     Indication: BREAST CANCER METASTATIC
     Dosage: THERAPY DETAIL WAS NOT REPORTED?2+6 CYCLES
     Route: 065
  20. LAPATINIB [Concomitant]
     Active Substance: LAPATINIB
     Indication: BREAST CANCER METASTATIC
     Dosage: THERAPY DETAIL WAS NOT REPORTED
     Route: 065
  21. FLUOROURACIL. [Concomitant]
     Active Substance: FLUOROURACIL
     Indication: BREAST CANCER
  22. ANASTROZOLE. [Concomitant]
     Active Substance: ANASTROZOLE
     Indication: BREAST CANCER
  23. OXALIPLATIN. [Concomitant]
     Active Substance: OXALIPLATIN
     Indication: BREAST CANCER METASTATIC
  24. PACLITAXEL. [Concomitant]
     Active Substance: PACLITAXEL
     Indication: BREAST CANCER METASTATIC
     Dosage: THERAPY DETAIL WAS NOT REPORTED?2+6 CYCLES
     Route: 065
  25. OXALIPLATIN. [Concomitant]
     Active Substance: OXALIPLATIN
     Indication: BREAST CANCER
  26. FLUOROURACIL. [Concomitant]
     Active Substance: FLUOROURACIL
     Indication: BREAST CANCER METASTATIC

REACTIONS (3)
  - Diarrhoea [Unknown]
  - Pathological fracture [Unknown]
  - Palmar-plantar erythrodysaesthesia syndrome [Unknown]

NARRATIVE: CASE EVENT DATE: 201604
